FAERS Safety Report 9438807 (Version 2)
Quarter: 2013Q3

REPORT INFORMATION
  Report Type: Spontaneous
  Country: US (occurrence: US)
  Receive Date: 20130802
  Receipt Date: 20130924
  Transmission Date: 20140515
  Serious: No
  Sender: FDA-Public Use
  Company Number: US-PFIZER INC-2013224525

PATIENT
  Age: 44 Year
  Sex: Female

DRUGS (1)
  1. ADVIL [Suspect]
     Indication: BACK PAIN
     Dosage: 200MG ONCE A DAY
     Route: 048
     Dates: start: 20130730, end: 20130730

REACTIONS (3)
  - Poor quality drug administered [Unknown]
  - Oral discomfort [Recovered/Resolved]
  - Product physical issue [Unknown]
